FAERS Safety Report 23403959 (Version 1)
Quarter: 2024Q1

REPORT INFORMATION
  Report Type: Spontaneous
  Country: US (occurrence: US)
  Receive Date: 20240116
  Receipt Date: 20240116
  Transmission Date: 20240410
  Serious: Yes (Other)
  Sender: FDA-Public Use
  Company Number: US-ORGANON-O2401USA000990

PATIENT
  Age: 25 Year
  Sex: Female
  Weight: 63.492 kg

DRUGS (1)
  1. NEXPLANON [Suspect]
     Active Substance: ETONOGESTREL
     Indication: Contraception
     Dosage: 1 IMPLANT, RIGHT ARM
     Route: 059
     Dates: start: 20190308

REACTIONS (11)
  - Device dislocation [Not Recovered/Not Resolved]
  - Implant site pain [Unknown]
  - Skin laceration [Unknown]
  - Paraesthesia [Not Recovered/Not Resolved]
  - Hypoaesthesia [Not Recovered/Not Resolved]
  - Pain [Not Recovered/Not Resolved]
  - Nerve injury [Unknown]
  - Weight increased [Unknown]
  - Complication of device removal [Not Recovered/Not Resolved]
  - Wrong technique in product usage process [Unknown]
  - Incorrect product administration duration [Unknown]

NARRATIVE: CASE EVENT DATE: 20190308
